FAERS Safety Report 6643039-8 (Version None)
Quarter: 2010Q1

REPORT INFORMATION
  Report Type: 
  Country: None (occurrence: None)
  Receive Date: 20100319
  Receipt Date: 20100311
  Transmission Date: 20100710
  Serious: Yes (Hospitalization)
  Sender: FDA-Public Use
  Company Number: B0641221A

PATIENT
  Sex: Male

DRUGS (4)
  1. NABUCOX [Suspect]
     Indication: BRONCHITIS
     Route: 048
     Dates: start: 20100125, end: 20100129
  2. HUMIRA [Suspect]
     Indication: PSORIASIS
     Route: 058
     Dates: start: 20090601, end: 20100126
  3. PARACETAMOL [Suspect]
     Indication: BRONCHITIS
     Route: 048
     Dates: start: 20100125, end: 20100129
  4. OMEPRAZOLE [Suspect]
     Indication: BRONCHITIS
     Route: 048
     Dates: start: 20100125, end: 20100129

REACTIONS (1)
  - LEUKOCYTOCLASTIC VASCULITIS [None]
